FAERS Safety Report 18281486 (Version 1)
Quarter: 2020Q3

REPORT INFORMATION
  Report Type: Spontaneous
  Country: US (occurrence: US)
  Receive Date: 20200917
  Receipt Date: 20200917
  Transmission Date: 20201103
  Serious: No
  Sender: FDA-Public Use
  Company Number: None

PATIENT
  Age: 51 Year
  Sex: Female
  Weight: 62.55 kg

DRUGS (13)
  1. GELCLAIR [Concomitant]
  2. MAGNESIUM GLUCONATE 500MG [Concomitant]
  3. LIDOCAINE VISCOUS 2% [Concomitant]
  4. ASMENEX 200MCG/ACT [Concomitant]
  5. ROSUVASTATIN 10MG [Concomitant]
     Active Substance: ROSUVASTATIN
  6. SYNTHROID [Concomitant]
     Active Substance: LEVOTHYROXINE SODIUM
  7. MULTIVITAMIN 100MG [Concomitant]
  8. VITAMIN C 500MG [Concomitant]
  9. AFINITOR [Suspect]
     Active Substance: EVEROLIMUS
     Indication: LUNG NEOPLASM MALIGNANT
     Route: 048
     Dates: start: 20200518
  10. OMEPRAZOLE 40MG [Concomitant]
     Active Substance: OMEPRAZOLE
  11. MIRACLE MAGIC MOUTHWASH [Concomitant]
  12. FLUTICASONE 50MCG/ACT [Concomitant]
  13. VITAMIN D3 1.25MG [Concomitant]

REACTIONS (1)
  - Alopecia [None]

NARRATIVE: CASE EVENT DATE: 20200917
